FAERS Safety Report 20232700 (Version 4)
Quarter: 2022Q2

REPORT INFORMATION
  Report Type: Spontaneous
  Country: US (occurrence: None)
  Receive Date: 20211227
  Receipt Date: 20220404
  Transmission Date: 20220721
  Serious: Yes (Life-Threatening, Hospitalization, Other)
  Sender: FDA-Public Use
  Company Number: US-ROCHE-2983752

PATIENT
  Age: 8 Year
  Sex: Female

DRUGS (6)
  1. TAMIFLU [Suspect]
     Active Substance: OSELTAMIVIR PHOSPHATE
     Indication: Influenza
     Route: 065
     Dates: start: 20171218
  2. AVASTIN [Suspect]
     Active Substance: BEVACIZUMAB
     Indication: Product used for unknown indication
     Route: 065
     Dates: start: 20200625
  3. AMOXICILLIN [Suspect]
     Active Substance: AMOXICILLIN
     Indication: Product used for unknown indication
     Route: 065
     Dates: start: 2014
  4. AMOXICILLIN [Suspect]
     Active Substance: AMOXICILLIN
     Route: 065
     Dates: start: 2015
  5. AMOXICILLIN [Suspect]
     Active Substance: AMOXICILLIN
     Route: 065
     Dates: start: 2016, end: 20171208
  6. POLYMYXIN B;TRIMETHOPRIM [Concomitant]

REACTIONS (69)
  - Vomiting [Unknown]
  - Stevens-Johnson syndrome [Unknown]
  - Toxic epidermal necrolysis [Unknown]
  - Compartment syndrome [Unknown]
  - Visual impairment [Unknown]
  - Acute respiratory distress syndrome [Unknown]
  - Depression [Unknown]
  - Blister [Unknown]
  - Symblepharon [Unknown]
  - Hyperkeratosis [Unknown]
  - Malnutrition [Unknown]
  - Dry eye [Unknown]
  - Dyspnoea [Unknown]
  - Cough [Unknown]
  - Dysphagia [Unknown]
  - Obstructive airways disorder [Unknown]
  - Pulmonary fibrosis [Unknown]
  - Exercise tolerance decreased [Unknown]
  - Blindness unilateral [Unknown]
  - Aphonia [Unknown]
  - Small intestinal obstruction [Unknown]
  - Intestinal ischaemia [Unknown]
  - Dehydration [Unknown]
  - Delirium [Unknown]
  - Post-traumatic stress disorder [Unknown]
  - Pulmonary oedema [Unknown]
  - Tachycardia [Unknown]
  - Oropharyngeal oedema [Unknown]
  - Conjunctival haemorrhage [Unknown]
  - Pain [Unknown]
  - Atelectasis [Unknown]
  - Generalised oedema [Unknown]
  - Pleural effusion [Unknown]
  - Neutropenia [Unknown]
  - Leukopenia [Unknown]
  - Hyperbilirubinaemia [Unknown]
  - Hyperglycaemia [Unknown]
  - Eye irritation [Unknown]
  - Dysuria [Unknown]
  - Muscular weakness [Unknown]
  - Pneumonia [Unknown]
  - Neuralgia [Unknown]
  - Shock [Unknown]
  - Toothache [Unknown]
  - Multi-organ disorder [Unknown]
  - Hepatosplenomegaly [Unknown]
  - Constipation [Unknown]
  - Nausea [Unknown]
  - Abdominal pain [Unknown]
  - Urinary retention [Unknown]
  - Lung disorder [Unknown]
  - Musculoskeletal stiffness [Unknown]
  - Dermatitis [Unknown]
  - Hypotension [Unknown]
  - Hypernatraemia [Unknown]
  - Oliguria [Unknown]
  - Agitation [Unknown]
  - Diarrhoea [Unknown]
  - Mouth haemorrhage [Unknown]
  - Pyrexia [Unknown]
  - Arthralgia [Unknown]
  - Osteopenia [Unknown]
  - Withdrawal syndrome [Unknown]
  - Ear disorder [Unknown]
  - Ear inflammation [Unknown]
  - Vulvovaginal adhesion [Unknown]
  - Face oedema [Unknown]
  - Adjustment disorder [Unknown]
  - Off label use [Unknown]

NARRATIVE: CASE EVENT DATE: 20180102
